FAERS Safety Report 6380109-6 (Version None)
Quarter: 2009Q3

REPORT INFORMATION
  Report Type: 
  Country: None (occurrence: None)
  Receive Date: 20090929
  Receipt Date: 20090916
  Transmission Date: 20100115
  Serious: Yes (Other)
  Sender: FDA-Public Use
  Company Number: NO-RANBAXY-2009RR-28174

PATIENT
  Age: 31 Year
  Sex: Female

DRUGS (5)
  1. LORAZEPAM [Suspect]
     Indication: MANIA
     Dosage: 2.5 MG, UNK
     Route: 048
  2. OLANZAPINA TERAPIA 10MG COMPRIMATE ORODISPERSABILE [Suspect]
     Dosage: 15 MG, UNK
  3. OLANZAPINA TERAPIA 10MG COMPRIMATE ORODISPERSABILE [Suspect]
     Dosage: 5 MG, UNK
  4. OLANZAPINA TERAPIA 10MG COMPRIMATE ORODISPERSABILE [Suspect]
     Dosage: 5 MG, UNK
  5. ZOPICLONE RPG 7.5MG COMPRIME PELLICULE SECABLE [Suspect]

REACTIONS (6)
  - BLOOD GLUCOSE INCREASED [None]
  - DRUG INTERACTION [None]
  - FALL [None]
  - HYPOTENSION [None]
  - LOSS OF CONSCIOUSNESS [None]
  - STRABISMUS [None]
